FAERS Safety Report 17295348 (Version 3)
Quarter: 2020Q1

REPORT INFORMATION
  Report Type: Report from Study
  Country: None (occurrence: DE)
  Receive Date: 20200121
  Receipt Date: 20200219
  Transmission Date: 20200409
  Serious: Yes (Hospitalization)
  Sender: FDA-Public Use
  Company Number: DE-ABBVIE-20K-062-3238289-00

PATIENT
  Age: 83 Year
  Sex: Female
  Weight: 80 kg

DRUGS (3)
  1. DUODOPA [Suspect]
     Active Substance: CARBIDOPA\LEVODOPA
     Indication: PARKINSON^S DISEASE
     Dosage: MD 8.0 ML, CRD 4.5 ML/H, ED 1.0 ML
     Route: 050
     Dates: start: 201907
  2. LEVODOPA [Concomitant]
     Active Substance: LEVODOPA
     Indication: PRODUCT USED FOR UNKNOWN INDICATION
     Dosage: 125/25
     Route: 048
  3. NEUPRO [Concomitant]
     Active Substance: ROTIGOTINE
     Indication: PRODUCT USED FOR UNKNOWN INDICATION
     Dosage: 6MG/24

REACTIONS (10)
  - Reduced facial expression [Unknown]
  - Therapeutic product effect variable [Unknown]
  - Joint range of motion decreased [Unknown]
  - Gait disturbance [Unknown]
  - Dementia [Unknown]
  - Femoral neck fracture [Not Recovered/Not Resolved]
  - Parkinson^s disease [Unknown]
  - Psychomotor skills impaired [Unknown]
  - Fall [Not Recovered/Not Resolved]
  - Tremor [Unknown]

NARRATIVE: CASE EVENT DATE: 20200116
